FAERS Safety Report 18501487 (Version 5)
Quarter: 2020Q4

REPORT INFORMATION
  Report Type: Report from Study
  Country: None (occurrence: CH)
  Receive Date: 20201113
  Receipt Date: 20201218
  Transmission Date: 20210114
  Serious: Yes (Life-Threatening, Other)
  Sender: FDA-Public Use
  Company Number: CH-CLINIGEN GROUP PLC/ CLINIGEN HEALTHCARE LTD-CH-CLGN-20-00497

PATIENT
  Age: 56 Year
  Sex: Male
  Weight: 75 kg

DRUGS (17)
  1. FLUDARABINE [Suspect]
     Active Substance: FLUDARABINE PHOSPHATE
     Indication: NON-SMALL CELL LUNG CANCER
     Route: 042
     Dates: start: 20201021, end: 20201025
  2. VANCOMYCIN [Concomitant]
     Active Substance: VANCOMYCIN
     Indication: PRODUCT USED FOR UNKNOWN INDICATION
     Route: 042
     Dates: start: 20201030, end: 20201109
  3. TRIOMER [Concomitant]
     Indication: PRODUCT USED FOR UNKNOWN INDICATION
     Route: 045
  4. LN-144, LN-145 [Suspect]
     Active Substance: LIFILEUCEL
     Indication: NON-SMALL CELL LUNG CANCER
     Route: 042
     Dates: start: 20201026, end: 20201026
  5. DOXYCYCLINE. [Concomitant]
     Active Substance: DOXYCYCLINE
     Indication: PRODUCT USED FOR UNKNOWN INDICATION
     Dates: start: 20201101, end: 20201102
  6. CALCIMAGON D3 [Concomitant]
     Active Substance: CALCIUM\CHOLECALCIFEROL
     Indication: PRODUCT USED FOR UNKNOWN INDICATION
     Route: 048
  7. ACIDUM FOLICUM [Concomitant]
     Active Substance: FOLIC ACID
     Indication: PRODUCT USED FOR UNKNOWN INDICATION
  8. SYMBICORT [Concomitant]
     Active Substance: BUDESONIDE\FORMOTEROL FUMARATE DIHYDRATE
     Indication: PRODUCT USED FOR UNKNOWN INDICATION
  9. PIPERACILLIN AND TAZOBACTAM [Concomitant]
     Active Substance: PIPERACILLIN SODIUM\TAZOBACTAM SODIUM
     Indication: PRODUCT USED FOR UNKNOWN INDICATION
     Dates: start: 20201030, end: 20201103
  10. ACIDUM FOLICUM [Concomitant]
     Active Substance: FOLIC ACID
  11. CYCLOPHOSPHAMIDE. [Suspect]
     Active Substance: CYCLOPHOSPHAMIDE
     Indication: NON-SMALL CELL LUNG CANCER
     Route: 042
     Dates: start: 20201019, end: 20201020
  12. PROLEUKIN [Suspect]
     Active Substance: ALDESLEUKIN
     Indication: NON-SMALL CELL LUNG CANCER
     Route: 042
     Dates: start: 20201027, end: 20201029
  13. FLOXAPEN [Concomitant]
     Active Substance: FLUCLOXACILLIN
     Indication: INFECTION PROPHYLAXIS
     Dates: start: 20201026, end: 20201030
  14. VALTREX [Concomitant]
     Active Substance: VALACYCLOVIR HYDROCHLORIDE
     Indication: PRODUCT USED FOR UNKNOWN INDICATION
  15. BACTRIM [Concomitant]
     Active Substance: SULFAMETHOXAZOLE\TRIMETHOPRIM
     Indication: PRODUCT USED FOR UNKNOWN INDICATION
     Route: 048
  16. FLATULEX [Concomitant]
     Active Substance: ACTIVATED CHARCOAL\DIMETHICONE
     Indication: PRODUCT USED FOR UNKNOWN INDICATION
     Route: 048
  17. LN-145-S1 [Suspect]
     Active Substance: INVESTIGATIONAL PRODUCT

REACTIONS (3)
  - Acute respiratory distress syndrome [Recovered/Resolved]
  - Delirium [Recovered/Resolved]
  - Pleural effusion [Recovered/Resolved]

NARRATIVE: CASE EVENT DATE: 20201031
